FAERS Safety Report 5203846-5 (Version None)
Quarter: 2007Q1

REPORT INFORMATION
  Report Type: 
  Country: None (occurrence: None)
  Receive Date: 20070110
  Receipt Date: 20061229
  Transmission Date: 20070707
  Serious: Yes (Hospitalization, Disabling)
  Sender: FDA-Public Use
  Company Number: DE-SANOFI-SYNTHELABO-A01200700064

PATIENT
  Sex: Female

DRUGS (7)
  1. LANSOPRAZOLE [Concomitant]
     Indication: IMPAIRED GASTRIC EMPTYING
  2. LANSOPRAZOLE [Concomitant]
     Indication: NAUSEA
  3. LANSOPRAZOLE [Concomitant]
     Indication: REGURGITATION
  4. DOMPERIDONE [Concomitant]
     Indication: IMPAIRED GASTRIC EMPTYING
  5. DOMPERIDONE [Concomitant]
     Indication: NAUSEA
  6. DOMPERIDONE [Concomitant]
     Indication: REGURGITATION
  7. PLAQUENIL [Suspect]
     Indication: SJOGREN'S SYNDROME
     Dosage: VARIABLE DOSE
     Dates: start: 20050101, end: 20061201

REACTIONS (27)
  - ANOREXIA [None]
  - ASTHENIA [None]
  - BACK PAIN [None]
  - BALANCE DISORDER [None]
  - BLOOD URINE PRESENT [None]
  - C-REACTIVE PROTEIN INCREASED [None]
  - DIARRHOEA [None]
  - DIPLOPIA [None]
  - DYSPHONIA [None]
  - HEADACHE [None]
  - HYPERHIDROSIS [None]
  - LETHARGY [None]
  - MUSCLE SPASMS [None]
  - MUSCLE TWITCHING [None]
  - MUSCULOSKELETAL STIFFNESS [None]
  - NAUSEA [None]
  - NEUROMYOPATHY [None]
  - OEDEMA PERIPHERAL [None]
  - PARAESTHESIA [None]
  - PERONEAL NERVE PALSY [None]
  - PHARYNGOLARYNGEAL PAIN [None]
  - PYREXIA [None]
  - RASH [None]
  - RAYNAUD'S PHENOMENON [None]
  - SENSATION OF HEAVINESS [None]
  - SWELLING FACE [None]
  - SYNCOPE [None]
